FAERS Safety Report 20168022 (Version 2)
Quarter: 2021Q4

REPORT INFORMATION
  Report Type: Spontaneous
  Country: GB (occurrence: GB)
  Receive Date: 20211210
  Receipt Date: 20211218
  Transmission Date: 20220303
  Serious: Yes (Death, Other)
  Sender: FDA-Public Use
  Company Number: None

PATIENT
  Age: 65 Year
  Sex: Female
  Weight: 120 kg

DRUGS (6)
  1. SARILUMAB [Suspect]
     Active Substance: SARILUMAB
     Indication: Coronavirus infection
     Dosage: 400 MG
     Dates: start: 20211113
  2. ENOXAPARIN SODIUM [Suspect]
     Active Substance: ENOXAPARIN SODIUM
     Indication: Coronavirus infection
     Dosage: 120 MG
     Dates: start: 20211113, end: 20211123
  3. CITALOPRAM [Concomitant]
     Active Substance: CITALOPRAM HYDROBROMIDE
     Indication: Depression
     Dosage: UNK
  4. CODEINE [Concomitant]
     Active Substance: CODEINE
     Indication: Analgesic therapy
     Dosage: UNK
  5. LANSOPRAZOLE [Concomitant]
     Active Substance: LANSOPRAZOLE
     Indication: Prophylaxis
     Dosage: UNK
  6. PULMICORT TURBUHALER [Concomitant]
     Active Substance: BUDESONIDE
     Indication: Asthma
     Dosage: UNK

REACTIONS (12)
  - Cerebral infarction [Fatal]
  - Staphylococcal bacteraemia [Fatal]
  - Pneumonia aspiration [Fatal]
  - Ureteric obstruction [Recovered/Resolved]
  - Arterial haemorrhage [Recovered/Resolved]
  - Pleural effusion [Recovered/Resolved]
  - Abdominal pain [Recovered/Resolved]
  - Pelvic haematoma [Recovered/Resolved]
  - Bladder pain [Recovered/Resolved]
  - Ureteric dilatation [Recovered/Resolved]
  - Atelectasis [Recovered/Resolved]
  - Abdominal wall haematoma [Recovering/Resolving]

NARRATIVE: CASE EVENT DATE: 20210101
